FAERS Safety Report 7193795-8 (Version None)
Quarter: 2010Q4

REPORT INFORMATION
  Report Type: 
  Country: None (occurrence: None)
  Receive Date: 20101223
  Receipt Date: 20101220
  Transmission Date: 20110411
  Serious: Yes (Hospitalization, Other)
  Sender: FDA-Public Use
  Company Number: US-US-EMD SERONO, INC.-7030473

PATIENT
  Sex: Female

DRUGS (2)
  1. REBIF [Suspect]
     Indication: MULTIPLE SCLEROSIS
     Route: 058
     Dates: start: 20071029, end: 20100901
  2. TYSABRI [Suspect]
     Dates: start: 20100901, end: 20100901

REACTIONS (6)
  - LUPUS NEPHRITIS [None]
  - MULTIPLE SCLEROSIS RELAPSE [None]
  - PLEURAL EFFUSION [None]
  - RENAL TUBULAR NECROSIS [None]
  - SMALL INTESTINAL OBSTRUCTION [None]
  - SYSTEMIC LUPUS ERYTHEMATOSUS [None]
